FAERS Safety Report 14542449 (Version 1)
Quarter: 2018Q1

REPORT INFORMATION
  Report Type: Spontaneous
  Country: US (occurrence: US)
  Receive Date: 20180216
  Receipt Date: 20180216
  Transmission Date: 20180509
  Serious: Yes (Hospitalization)
  Sender: FDA-Public Use
  Company Number: US-OTSUKA-DJ201404458

PATIENT

DRUGS (1)
  1. ABILIFY [Suspect]
     Active Substance: ARIPIPRAZOLE
     Indication: DEPRESSION
     Route: 048

REACTIONS (7)
  - Malaise [Unknown]
  - Fatigue [Unknown]
  - Wrong technique in product usage process [Unknown]
  - Dizziness [Unknown]
  - Uterine disorder [Unknown]
  - Depression [Unknown]
  - Lethargy [Unknown]

NARRATIVE: CASE EVENT DATE: 2005
